FAERS Safety Report 7624414-1 (Version None)
Quarter: 2011Q3

REPORT INFORMATION
  Report Type: 
  Country: None (occurrence: None)
  Receive Date: 20110720
  Receipt Date: 20110715
  Transmission Date: 20111222
  Serious: Yes (Death, Life-Threatening, Other)
  Sender: FDA-Public Use
  Company Number: JP-CEPHALON-2011002726

PATIENT
  Sex: Male
  Weight: 65 kg

DRUGS (12)
  1. VALSARTAN [Concomitant]
     Dates: start: 20110411, end: 20110428
  2. POTASSIUM CHLORIDE [Concomitant]
     Dates: start: 20110411, end: 20110421
  3. URSODIOL [Concomitant]
     Dates: start: 20110411, end: 20110428
  4. MECOBALAMIN [Concomitant]
     Dates: start: 20110411, end: 20110428
  5. BENDAMUSTINE HCL [Suspect]
     Indication: B-CELL LYMPHOMA
     Route: 042
     Dates: start: 20110414, end: 20110415
  6. GRANISETRON HYDROCHLORIDE [Concomitant]
  7. PREDNISOLONE [Concomitant]
     Dates: start: 20110411, end: 20110428
  8. WARFARIN SODIUM [Concomitant]
     Dates: start: 20110411, end: 20110424
  9. RITUXIMAB [Suspect]
     Indication: B-CELL LYMPHOMA
     Dates: start: 20110413, end: 20110413
  10. LANSOPRAZOLE [Concomitant]
     Dates: start: 20110411, end: 20110428
  11. NIFEDIPINE [Concomitant]
     Dates: start: 20110411, end: 20110428
  12. METHYLPREDNISOLONE SODIUM SUCCINATE [Concomitant]
     Dates: start: 20110426, end: 20110513

REACTIONS (9)
  - CYTOMEGALOVIRUS INFECTION [None]
  - PNEUMOTHORAX [None]
  - PNEUMONITIS [None]
  - PANCREATITIS [None]
  - CHOLANGITIS [None]
  - WHITE BLOOD CELL COUNT DECREASED [None]
  - B-CELL LYMPHOMA [None]
  - HISTIOCYTOSIS HAEMATOPHAGIC [None]
  - LYMPHOCYTE COUNT DECREASED [None]
